FAERS Safety Report 23673462 (Version 3)
Quarter: 2024Q3

REPORT INFORMATION
  Report Type: Spontaneous
  Country: CH (occurrence: CH)
  Receive Date: 20240326
  Receipt Date: 20240927
  Transmission Date: 20241016
  Serious: Yes (Hospitalization, Other)
  Sender: SANOFI AVENTIS
  Company Number: CH-SA-SAC20240307000515

PATIENT
  Age: 18 Year
  Sex: Female
  Weight: 63 kg

DRUGS (13)
  1. DUPILUMAB [Suspect]
     Active Substance: DUPILUMAB
     Indication: Dermatitis atopic
     Dosage: 300 MG, QOW
     Route: 058
     Dates: start: 20221223
  2. MIZZI GYNIAL [Concomitant]
     Dosage: UNK UNK, QD
  3. DAFALGAN [Concomitant]
     Active Substance: ACETAMINOPHEN
     Dosage: UNK UNK, PRN, MAX. 1G MAX. ONCE IN 6 HOURS
  4. IBUPROFEN [Concomitant]
     Active Substance: IBUPROFEN
     Dosage: 400 MG, Q8H (400MG MAX. ONCE EVERY 8 HOURS)
  5. CEFAZOLIN [Concomitant]
     Active Substance: CEFAZOLIN
     Dosage: 6 TIMES DAILY AS SCHEDULED
     Route: 047
  6. ANTIDRY LOTION SENSITIVE [Concomitant]
     Dosage: 50-100 MG, BID
     Route: 061
  7. MOMETASONE [Concomitant]
     Active Substance: MOMETASONE
     Dosage: 1 MG, QD
     Route: 061
  8. FEXOFENADINE [Concomitant]
     Active Substance: FEXOFENADINE HYDROCHLORIDE
     Dosage: 180 MG, QD
     Route: 048
  9. KETOCONAZOLE [Concomitant]
     Active Substance: KETOCONAZOLE
     Dosage: TWICE WEEKLY
     Route: 061
  10. PREDNISOLONE [Concomitant]
     Active Substance: PREDNISOLONE
     Dosage: UNK UNK, QID
     Route: 047
  11. PIMECROLIMUS [Concomitant]
     Active Substance: PIMECROLIMUS
     Dosage: 10 MG, BID, 5 DAYS PER WEEK
     Route: 061
  12. TOBRAMYCIN [Concomitant]
     Active Substance: TOBRAMYCIN\TOBRAMYCIN SULFATE
     Dosage: UNK UNK, QD
  13. MONOVO [Concomitant]

REACTIONS (8)
  - Corneal opacity [Unknown]
  - Keratitis [Recovered/Resolved]
  - Vision blurred [Recovered/Resolved]
  - Keratitis [Recovered/Resolved]
  - Corneal scar [Unknown]
  - Mydriasis [Unknown]
  - Erythema of eyelid [Unknown]
  - Swelling of eyelid [Unknown]

NARRATIVE: CASE EVENT DATE: 20240130
